FAERS Safety Report 9238773 (Version 1)
Quarter: 2013Q1

REPORT INFORMATION
  Report Type: Spontaneous
  Country: US (occurrence: None)
  Receive Date: 20121113
  Receipt Date: 20121113
  Transmission Date: 20140127
  Serious: No
  Sender: FDA-Public Use
  Company Number: PHEH2012US017709

PATIENT
  Sex: Female

DRUGS (2)
  1. ARCAPTA [Suspect]
  2. SPIRIVA (TIOTROPIUM BROMIDE) [Concomitant]

REACTIONS (4)
  - Fatigue [None]
  - Weight increased [None]
  - Dyspepsia [None]
  - Dizziness [None]
